FAERS Safety Report 10267032 (Version 1)
Quarter: 2014Q2

REPORT INFORMATION
  Report Type: Spontaneous
  Country: KR (occurrence: KR)
  Receive Date: 20140630
  Receipt Date: 20140630
  Transmission Date: 20141212
  Serious: Yes (Death)
  Sender: FDA-Public Use
  Company Number: KR-BRISTOL-MYERS SQUIBB COMPANY-21070636

PATIENT
  Sex: 0

DRUGS (1)
  1. SPRYCEL [Suspect]

REACTIONS (1)
  - Death [Fatal]
